FAERS Safety Report 8782497 (Version 1)
Quarter: 2012Q4

REPORT INFORMATION
  Report Type: 
  Country: US (occurrence: US)
  Receive Date: 20120913
  Receipt Date: 20120913
  Transmission Date: 20130627
  Serious: No
  Sender: FDA-Public Use
  Company Number: US-ASTRAZENECA-2012SE64758

PATIENT
  Age: 65 Year
  Sex: Female

DRUGS (1)
  1. CRESTOR [Suspect]
     Route: 048

REACTIONS (8)
  - Back pain [Unknown]
  - Eye pain [Unknown]
  - Photophobia [Unknown]
  - Arthropathy [Unknown]
  - Headache [Unknown]
  - Musculoskeletal pain [Unknown]
  - Muscle spasms [Unknown]
  - Nausea [Unknown]
